FAERS Safety Report 4329489-3 (Version None)
Quarter: 2004Q1

REPORT INFORMATION
  Report Type: 
  Country: None (occurrence: None)
  Receive Date: 20040331
  Receipt Date: 20040331
  Transmission Date: 20041129
  Serious: Yes (Life-Threatening, Hospitalization)
  Sender: FDA-Public Use
  Company Number: None

PATIENT
  Age: 33 Year
  Sex: Male
  Weight: 94.3482 kg

DRUGS (1)
  1. VALIUM [Suspect]
     Indication: BACK PAIN
     Dosage: 5 MG IVP OVER 2^
     Route: 042
     Dates: start: 20040309

REACTIONS (1)
  - ANAPHYLACTOID REACTION [None]
